FAERS Safety Report 7808123-1 (Version None)
Quarter: 2011Q4

REPORT INFORMATION
  Report Type: 
  Country: None (occurrence: None)
  Receive Date: 20111011
  Receipt Date: 20110926
  Transmission Date: 20120403
  Serious: Yes (Hospitalization, Other)
  Sender: FDA-Public Use
  Company Number: BR-ROCHE-1001761

PATIENT
  Age: 48 Year
  Sex: Female

DRUGS (4)
  1. SPIRIVA [Concomitant]
  2. XOLAIR [Suspect]
     Indication: ASTHMA
     Dates: start: 20100901, end: 20110906
  3. SERETIDE [Concomitant]
     Dosage: 50/500 MG
  4. FLUOXIN [Concomitant]

REACTIONS (5)
  - NASOPHARYNGITIS [None]
  - INJECTION SITE HAEMORRHAGE [None]
  - INCORRECT ROUTE OF DRUG ADMINISTRATION [None]
  - ASTHMA [None]
  - COUGH [None]
